FAERS Safety Report 4855016-8 (Version None)
Quarter: 2005Q4

REPORT INFORMATION
  Report Type: 
  Country: None (occurrence: None)
  Receive Date: 20051214
  Receipt Date: 20051202
  Transmission Date: 20060501
  Serious: Yes (Hospitalization)
  Sender: FDA-Public Use
  Company Number: 2005165090

PATIENT
  Age: 45 Year
  Sex: Female

DRUGS (4)
  1. EPIRUBICIN [Suspect]
     Indication: BREAST CANCER
     Dosage: 125 MG (125 MG)
     Dates: start: 20050414, end: 20050509
  2. TAXOTERE [Suspect]
     Indication: BREAST CANCER
     Dosage: 105 MG (105 MG,)
     Dates: start: 20050210, end: 20050509
  3. NEUPOGEN [Concomitant]
  4. OMEPRAZOLE [Concomitant]

REACTIONS (2)
  - ABDOMINAL PAIN [None]
  - MYALGIA [None]
